FAERS Safety Report 20041715 (Version 3)
Quarter: 2022Q1

REPORT INFORMATION
  Report Type: Report from Study
  Country: CA (occurrence: CA)
  Receive Date: 20211108
  Receipt Date: 20220125
  Transmission Date: 20220424
  Serious: Yes (Hospitalization, Other)
  Sender: FDA-Public Use
  Company Number: CA-JNJFOC-20211001240

PATIENT
  Age: 74 Year
  Sex: Female
  Weight: 59.1 kg

DRUGS (1)
  1. REMICADE [Suspect]
     Active Substance: INFLIXIMAB
     Indication: Crohn^s disease
     Dosage: THERAPY START DATE 21-DEC-2012
     Route: 042
     Dates: start: 20071210

REACTIONS (2)
  - Hysterectomy [Recovering/Resolving]
  - Neoplasm of appendix [Not Recovered/Not Resolved]

NARRATIVE: CASE EVENT DATE: 20211014
